FAERS Safety Report 8524681 (Version 2)
Quarter: 2012Q4

REPORT INFORMATION
  Report Type: 
  Country: FR (occurrence: FR)
  Receive Date: 20120422
  Receipt Date: 20121106
  Transmission Date: 20130627
  Serious: Yes (Hospitalization)
  Sender: FDA-Public Use
  Company Number: FR-BRISTOL-MYERS SQUIBB COMPANY-16520538

PATIENT
  Age: 78 Year
  Sex: Female
  Weight: 52 kg

DRUGS (7)
  1. ABILIFY [Suspect]
     Indication: BIPOLAR DISORDER
     Dosage: 10 mg morning and 20 mg 2 tabs evening,dose increased to 40mg,21Jun11-Apr12
     Route: 048
     Dates: start: 20110621, end: 20120613
  2. TEGRETOL [Suspect]
     Indication: BIPOLAR DISORDER
     Dosage: Tegretol 200 LP,1tab in mor+2tab in eve,dose decreased to300mg daily(1tab in mor and half in eve)
     Route: 048
     Dates: start: 201107, end: 20120608
  3. LEVOTHYROX [Concomitant]
     Indication: HYPOTHYROIDISM
     Dosage: Levothyrox (levothyroxin sodium) 75 mg morning,also received 100mg
     Route: 048
  4. LIPANTHYL [Concomitant]
  5. PIASCLEDINE [Concomitant]
     Indication: HYPERTENSION
     Dosage: avocado oil unsaponifiables and soya oil unsaponifiables
  6. COZAAR [Concomitant]
     Indication: HYPERTENSION
  7. AMLOR [Concomitant]
     Indication: HYPERTENSION

REACTIONS (2)
  - Delusion [Recovered/Resolved]
  - Drug ineffective [Recovered/Resolved]
